FAERS Safety Report 4356173-2 (Version None)
Quarter: 2004Q2

REPORT INFORMATION
  Report Type: 
  Country: None (occurrence: None)
  Receive Date: 20040506
  Receipt Date: 20040426
  Transmission Date: 20050107
  Serious: Yes (Death, Life-Threatening, Hospitalization)
  Sender: FDA-Public Use
  Company Number: SE-JNJFOC-20040405483

PATIENT
  Age: 51 Year
  Sex: Female

DRUGS (2)
  1. REMICADE [Suspect]
     Indication: RHEUMATOID ARTHRITIS
     Dosage: INTRAVENOUS
     Route: 042
     Dates: start: 20010101, end: 20010101
  2. ENBREL [Suspect]
     Indication: RHEUMATOID ARTHRITIS

REACTIONS (8)
  - ADVERSE DRUG REACTION [None]
  - ANAEMIA [None]
  - DRUG INEFFECTIVE [None]
  - DRUG INTERACTION [None]
  - HODGKIN'S DISEASE [None]
  - INFECTION [None]
  - PYREXIA [None]
  - THROMBOCYTOPENIA [None]
